FAERS Safety Report 13988929 (Version 1)
Quarter: 2017Q3

REPORT INFORMATION
  Report Type: Spontaneous
  Country: RU (occurrence: RU)
  Receive Date: 20170919
  Receipt Date: 20170919
  Transmission Date: 20171128
  Serious: Yes (Other)
  Sender: FDA-Public Use
  Company Number: RU-ASTRAZENECA-2017SE94928

PATIENT
  Age: 68 Year
  Sex: Female
  Weight: 100 kg

DRUGS (7)
  1. TRICOR [Concomitant]
     Active Substance: FENOFIBRATE
  2. FORXIGA [Suspect]
     Active Substance: DAPAGLIFLOZIN
     Indication: TYPE 2 DIABETES MELLITUS
     Route: 048
     Dates: start: 201612
  3. INDAPAMIDE. [Concomitant]
     Active Substance: INDAPAMIDE
  4. LERCANIDIPINE [Concomitant]
     Active Substance: LERCANIDIPINE
  5. NEBIVOLOL. [Concomitant]
     Active Substance: NEBIVOLOL
  6. VALZ [Concomitant]
     Active Substance: VALSARTAN
  7. INSULIN [Concomitant]
     Active Substance: INSULIN NOS

REACTIONS (5)
  - Traumatic fracture [Recovering/Resolving]
  - Blood glucose increased [Recovered/Resolved]
  - Drug ineffective [Recovered/Resolved]
  - Fall [Unknown]
  - Oedema peripheral [Recovered/Resolved]

NARRATIVE: CASE EVENT DATE: 2017
